FAERS Safety Report 6200103-5 (Version None)
Quarter: 2009Q2

REPORT INFORMATION
  Report Type: 
  Country: None (occurrence: None)
  Receive Date: 20090522
  Receipt Date: 20090513
  Transmission Date: 20091009
  Serious: Yes (Hospitalization, Other)
  Sender: FDA-Public Use
  Company Number: PHHY2009CA12680

PATIENT
  Sex: Male

DRUGS (1)
  1. SANDOSTATIN LAR [Suspect]
     Indication: NEUROENDOCRINE TUMOUR
     Dosage: 30 MG, QW4
     Route: 030
     Dates: start: 20081210

REACTIONS (5)
  - CONFUSIONAL STATE [None]
  - COORDINATION ABNORMAL [None]
  - DELIRIUM [None]
  - DEPRESSION [None]
  - MEMORY IMPAIRMENT [None]
